FAERS Safety Report 8096443-8 (Version None)
Quarter: 2012Q1

REPORT INFORMATION
  Report Type: 
  Country: None (occurrence: None)
  Receive Date: 20120129
  Receipt Date: 20111212
  Transmission Date: 20120608
  Serious: No
  Sender: FDA-Public Use
  Company Number: US-ABBOTT-11P-163-0883033-00

PATIENT
  Age: 44 Year
  Sex: Female

DRUGS (11)
  1. VITAMIN D [Concomitant]
     Indication: PRODUCT USED FOR UNKNOWN INDICATION
     Dosage: LUNCH SUPPLEMENT
  2. IRON [Concomitant]
     Indication: PRODUCT USED FOR UNKNOWN INDICATION
     Dosage: IN THE MORNING
  3. PENTASA [Concomitant]
     Indication: CROHN'S DISEASE
  4. DICYCLOMINE [Concomitant]
     Indication: CROHN'S DISEASE
     Dosage: DAILY
     Route: 048
  5. VITAMIN A [Concomitant]
     Indication: PRODUCT USED FOR UNKNOWN INDICATION
     Dosage: LUNCH SUPPLEMENT
  6. ASCORBIC ACID [Concomitant]
     Indication: PRODUCT USED FOR UNKNOWN INDICATION
     Dosage: IN THE MORNING
  7. MULTI-VITAMIN [Concomitant]
     Indication: PRODUCT USED FOR UNKNOWN INDICATION
     Dosage: IN THE MORNING
  8. VITAMIN B-12 [Concomitant]
     Indication: PRODUCT USED FOR UNKNOWN INDICATION
     Dosage: LUNCH SUPPLEMENT
  9. HUMIRA [Suspect]
     Indication: CROHN'S DISEASE
     Dates: start: 20100701
  10. ZANTAC [Concomitant]
     Indication: PRODUCT USED FOR UNKNOWN INDICATION
     Dosage: IN THE MORNING
     Route: 048
  11. CALCIUM [Concomitant]
     Indication: PRODUCT USED FOR UNKNOWN INDICATION
     Dosage: LUNCH SUPPLEMENT

REACTIONS (2)
  - OCULAR HYPERAEMIA [None]
  - EYE INFECTION VIRAL [None]
